APPROVED DRUG PRODUCT: ATORVASTATIN CALCIUM
Active Ingredient: ATORVASTATIN CALCIUM
Strength: EQ 80MG BASE
Dosage Form/Route: TABLET;ORAL
Application: A204991 | Product #004
Applicant: LUPIN LTD
Approved: Mar 6, 2019 | RLD: No | RS: No | Type: DISCN